FAERS Safety Report 24560860 (Version 2)
Quarter: 2024Q4

REPORT INFORMATION
  Report Type: Spontaneous
  Country: FR (occurrence: FR)
  Receive Date: 20241029
  Receipt Date: 20241106
  Transmission Date: 20250115
  Serious: Yes (Hospitalization)
  Sender: PFIZER
  Company Number: FR-GILEAD-2024-0691246

PATIENT
  Sex: Male
  Weight: 73 kg

DRUGS (2)
  1. GEMCITABINE HYDROCHLORIDE [Suspect]
     Active Substance: GEMCITABINE HYDROCHLORIDE
     Indication: Transitional cell carcinoma metastatic
     Dosage: 1000 MG/M2, CYCLIC (1000 MG/M2, D1 AND D8 EVERY 21 DAYS)
     Route: 042
     Dates: start: 20240530, end: 20240912
  2. CARBOPLATIN [Suspect]
     Active Substance: CARBOPLATIN
     Indication: Transitional cell carcinoma metastatic
     Dosage: UNK, CYCLIC (5 AUC, D1 EVERY 21 DAYS)
     Route: 042
     Dates: start: 20240530, end: 20240912

REACTIONS (2)
  - Ischaemic cardiomyopathy [Recovered/Resolved with Sequelae]
  - Off label use [Unknown]

NARRATIVE: CASE EVENT DATE: 20240530
